FAERS Safety Report 5570270-5 (Version None)
Quarter: 2007Q4

REPORT INFORMATION
  Report Type: 
  Country: None (occurrence: None)
  Receive Date: 20071219
  Receipt Date: 20071210
  Transmission Date: 20080405
  Serious: Yes (Hospitalization)
  Sender: FDA-Public Use
  Company Number: 2007BI014892

PATIENT
  Age: 77 Year
  Sex: Female
  Weight: 62.1428 kg

DRUGS (8)
  1. AVONEX [Suspect]
     Indication: MULTIPLE SCLEROSIS
     Dosage: 30 UG; QW; IM
     Route: 030
     Dates: start: 20010120, end: 20030501
  2. AVONEX [Suspect]
     Indication: MULTIPLE SCLEROSIS
     Dosage: 30 UG; QW; IM
     Route: 030
     Dates: start: 20061001
  3. BETASERAN [Concomitant]
  4. NORVASC [Concomitant]
  5. OXAZEPAM [Concomitant]
  6. MULTI-VITAMIN [Concomitant]
  7. CALCIUM VITAMIN D [Concomitant]
  8. ASCORBIC ACID [Concomitant]

REACTIONS (3)
  - NEOPLASM MALIGNANT [None]
  - RENAL CELL CARCINOMA STAGE UNSPECIFIED [None]
  - SPLEEN DISORDER [None]
